FAERS Safety Report 22724329 (Version 4)
Quarter: 2023Q4

REPORT INFORMATION
  Report Type: Report from Study
  Country: IT (occurrence: IT)
  Receive Date: 20230719
  Receipt Date: 20231227
  Transmission Date: 20240109
  Serious: Yes (Other)
  Sender: FDA-Public Use
  Company Number: IT-UCBSA-2023031237

PATIENT
  Sex: Female

DRUGS (7)
  1. KEPPRA [Suspect]
     Active Substance: LEVETIRACETAM
     Indication: Epilepsy
     Dosage: 2 TABLETS OF 500 MILLIGRAM, 2X/DAY (BID)
  2. VIMPAT [Suspect]
     Active Substance: LACOSAMIDE
     Indication: Epilepsy
     Dosage: 50 MILLIGRAM
     Dates: start: 202306
  3. VIMPAT [Suspect]
     Active Substance: LACOSAMIDE
     Dosage: 100 MILLIGRAM, 2X/DAY (BID)
  4. VIMPAT [Suspect]
     Active Substance: LACOSAMIDE
     Dosage: 50 MILLIGRAM TABLET IN THE MORNING
  5. VIMPAT [Suspect]
     Active Substance: LACOSAMIDE
     Dosage: 100 MILLIGRAM TABLET IN THE EVENING
  6. VIMPAT [Suspect]
     Active Substance: LACOSAMIDE
     Dosage: 50 MILLIGRAM, 2X/DAY (BID)
  7. VIMPAT [Suspect]
     Active Substance: LACOSAMIDE
     Dosage: 25MG IN THE MORNING, BREAKING THE 50MG TABLET, AND A 50MG TABLET IN THE EVENING

REACTIONS (13)
  - Salivary gland calculus [Unknown]
  - Salivary duct obstruction [Unknown]
  - Salivary gland resection [Unknown]
  - Seizure [Unknown]
  - Change in seizure presentation [Unknown]
  - Eye movement disorder [Unknown]
  - Confusional state [Recovering/Resolving]
  - Abdominal distension [Unknown]
  - Feeling abnormal [Recovering/Resolving]
  - Fall [Unknown]
  - Off label use [Unknown]
  - Drug ineffective [Unknown]
  - Wrong technique in product usage process [Unknown]

NARRATIVE: CASE EVENT DATE: 20230601
